FAERS Safety Report 7402608-8 (Version None)
Quarter: 2011Q1

REPORT INFORMATION
  Report Type: 
  Country: None (occurrence: None)
  Receive Date: 20110331
  Receipt Date: 20110318
  Transmission Date: 20110831
  Serious: Yes (Hospitalization)
  Sender: FDA-Public Use
  Company Number: 530#6#2007-00013

PATIENT
  Sex: Female
  Weight: 84 kg

DRUGS (19)
  1. LEVOTHYROXINE SODIUM [Concomitant]
  2. LYRICA [Concomitant]
  3. PHOSETAMIN [Concomitant]
  4. TIMONIL [Concomitant]
  5. MAGNESIUM [Concomitant]
  6. ROTIGOTINE (NEUPRO-PATCH-DOSE-UNKNOWN) [Suspect]
     Indication: PARKINSON'S DISEASE
     Dosage: 2 MG, QD, 2, 4 MG/24 HOURS, 4 MG, QD, TRANSDERMAL
     Route: 062
     Dates: start: 20061024, end: 20070122
  7. ROTIGOTINE (NEUPRO-PATCH-DOSE-UNKNOWN) [Suspect]
     Indication: PARKINSON'S DISEASE
     Dosage: 2 MG, QD, 2, 4 MG/24 HOURS, 4 MG, QD, TRANSDERMAL
     Route: 062
     Dates: start: 20061017, end: 20061023
  8. DICLAC [Concomitant]
  9. REMEGRIL [Concomitant]
  10. LEVODOPA (LEVODOPA 100 MG, TABLETS) [Suspect]
     Indication: PARKINSON'S DISEASE
     Dosage: 100 MG TID, ORAL
     Route: 048
     Dates: start: 20060915, end: 20061016
  11. KALCIUM D-VITAMIN [Concomitant]
  12. SILICUR [Concomitant]
  13. TAVOR [Concomitant]
  14. EDRONAX [Concomitant]
  15. TRAMAL [Concomitant]
  16. MUSARIL [Concomitant]
  17. STRIATON (STRIATON 200 MG/CARBIDOPA, 50 MG, TABLETS (NOT SPECIFIED) [Suspect]
     Indication: PARKINSON'S DISEASE
     Dosage: 0.25 DF BID, 200 MG (2X1/4 TABLET PER DAY), ORAL (0.5 DF TID, 200 MG (3X0.5 TABLETS PER DAY), ORAL (
     Route: 048
     Dates: start: 20060915, end: 20060915
  18. STRIATON (STRIATON 200 MG/CARBIDOPA, 50 MG, TABLETS (NOT SPECIFIED) [Suspect]
     Indication: PARKINSON'S DISEASE
     Dosage: 0.25 DF BID, 200 MG (2X1/4 TABLET PER DAY), ORAL (0.5 DF TID, 200 MG (3X0.5 TABLETS PER DAY), ORAL (
     Route: 048
     Dates: start: 20050317, end: 20070717
  19. STRIATON (STRIATON 200 MG/CARBIDOPA, 50 MG, TABLETS (NOT SPECIFIED) [Suspect]
     Indication: PARKINSON'S DISEASE
     Dosage: 0.25 DF BID, 200 MG (2X1/4 TABLET PER DAY), ORAL (0.5 DF TID, 200 MG (3X0.5 TABLETS PER DAY), ORAL (
     Route: 048
     Dates: start: 20050915, end: 20061016

REACTIONS (8)
  - DYSGEUSIA [None]
  - MUSCLE SPASMS [None]
  - INTERVERTEBRAL DISC PROTRUSION [None]
  - DIARRHOEA [None]
  - HYPERSENSITIVITY [None]
  - PALPITATIONS [None]
  - PARAESTHESIA [None]
  - GAIT DISTURBANCE [None]
